FAERS Safety Report 5909189-6 (Version None)
Quarter: 2008Q4

REPORT INFORMATION
  Report Type: 
  Country: None (occurrence: None)
  Receive Date: 20081006
  Receipt Date: 20081003
  Transmission Date: 20090506
  Serious: Yes (Hospitalization)
  Sender: FDA-Public Use
  Company Number: FR-WYE-G02286908

PATIENT
  Sex: Male

DRUGS (4)
  1. ADVIL [Suspect]
     Route: 048
     Dates: start: 20080830, end: 20080903
  2. SURGAM [Suspect]
     Route: 048
     Dates: start: 20080903, end: 20080906
  3. ACETAMINOPHEN [Concomitant]
     Dosage: UNKNOWN
     Route: 048
     Dates: start: 20080101
  4. AMOXICILLIN [Suspect]
     Indication: TONSILLITIS
     Route: 048
     Dates: start: 20080828, end: 20080906

REACTIONS (2)
  - FEBRILE NEUTROPENIA [None]
  - HYPERAESTHESIA [None]
